FAERS Safety Report 5688367-8 (Version None)
Quarter: 2008Q1

REPORT INFORMATION
  Report Type: 
  Country: None (occurrence: None)
  Receive Date: 20080328
  Receipt Date: 20080328
  Transmission Date: 20080703
  Serious: Yes (Life-Threatening, Other)
  Sender: FDA-Public Use
  Company Number: None

PATIENT
  Sex: Female
  Weight: 86.1834 kg

DRUGS (4)
  1. ALLEGRA [Suspect]
     Indication: HYPERSENSITIVITY
     Dosage: 1 PILL A DAY DAILY PO
     Route: 048
     Dates: start: 20030215, end: 20080109
  2. ALBUTEROL [Concomitant]
  3. NASACORT/FLONASE [Concomitant]
  4. CRANTEX LA [Concomitant]

REACTIONS (38)
  - ABDOMINAL PAIN UPPER [None]
  - ANXIETY [None]
  - APATHY [None]
  - ARTHRITIS [None]
  - CEREBROVASCULAR ACCIDENT [None]
  - CONFUSIONAL STATE [None]
  - CRYING [None]
  - DISTURBANCE IN ATTENTION [None]
  - DRY MOUTH [None]
  - ERYTHEMA [None]
  - EYE PAIN [None]
  - FATIGUE [None]
  - FEAR [None]
  - FEELING ABNORMAL [None]
  - FEELING HOT [None]
  - GENITAL SWELLING [None]
  - HEADACHE [None]
  - HYPERHIDROSIS [None]
  - HYPERSOMNIA [None]
  - HYPOAESTHESIA [None]
  - INCREASED APPETITE [None]
  - LOSS OF LIBIDO [None]
  - MAJOR DEPRESSION [None]
  - MEMORY IMPAIRMENT [None]
  - MENSTRUAL DISORDER [None]
  - MIGRAINE [None]
  - MOOD SWINGS [None]
  - MUSCLE INJURY [None]
  - MYALGIA [None]
  - OEDEMA PERIPHERAL [None]
  - PAIN [None]
  - PARAESTHESIA [None]
  - POLLAKIURIA [None]
  - SUICIDAL IDEATION [None]
  - SWELLING FACE [None]
  - TREMOR [None]
  - VISION BLURRED [None]
  - WEIGHT INCREASED [None]
